FAERS Safety Report 6474672-4 (Version None)
Quarter: 2009Q4

REPORT INFORMATION
  Report Type: 
  Country: None (occurrence: None)
  Receive Date: 20091204
  Receipt Date: 20091126
  Transmission Date: 20100525
  Serious: Yes (Death, Life-Threatening, Hospitalization, Other)
  Sender: FDA-Public Use
  Company Number: JP-PFIZER INC-2009286346

PATIENT
  Age: 72 Year
  Sex: Female
  Weight: 28 kg

DRUGS (6)
  1. LIPITOR [Suspect]
     Indication: HYPERCHOLESTEROLAEMIA
     Dosage: 5 MG, 1X/DAY
     Route: 048
     Dates: start: 20090807, end: 20090815
  2. DEPAS [Concomitant]
     Dosage: UNK
     Route: 048
     Dates: start: 20070801, end: 20070815
  3. LENDORMIN [Concomitant]
     Dosage: UNK
     Route: 048
     Dates: start: 20090803, end: 20090815
  4. GASTER [Concomitant]
     Indication: GASTRITIS
     Dosage: UNK
     Route: 048
     Dates: start: 20090401, end: 20090815
  5. SUCRALFATE [Concomitant]
     Indication: GASTRITIS
     Dosage: UNK
     Route: 048
     Dates: start: 20090401, end: 20090815
  6. PURSENNID [Concomitant]
     Dosage: UNK
     Route: 048
     Dates: start: 20070801, end: 20090815

REACTIONS (5)
  - ALTERED STATE OF CONSCIOUSNESS [None]
  - BLOOD CREATINE PHOSPHOKINASE INCREASED [None]
  - CARDIAC FAILURE ACUTE [None]
  - HEPATIC FUNCTION ABNORMAL [None]
  - HYPOGLYCAEMIA [None]
